FAERS Safety Report 19032291 (Version 2)
Quarter: 2021Q3

REPORT INFORMATION
  Report Type: Spontaneous
  Country: US (occurrence: US)
  Receive Date: 20210319
  Receipt Date: 20210929
  Transmission Date: 20211014
  Serious: Yes (Life-Threatening, Hospitalization, Other)
  Sender: FDA-Public Use
  Company Number: US-INDIVIOR US-INDV-128821-2021

PATIENT

DRUGS (2)
  1. METHAMPHETAMINE [METAMFETAMINE] [Suspect]
     Active Substance: METHAMPHETAMINE
     Indication: PRODUCT USED FOR UNKNOWN INDICATION
     Dosage: UNK
     Route: 065
  2. BUPRENORPHINE. [Suspect]
     Active Substance: BUPRENORPHINE
     Dosage: UNK
     Route: 065

REACTIONS (8)
  - Loss of consciousness [Recovered/Resolved]
  - Sleep apnoea syndrome [Recovered/Resolved]
  - Wheezing [Recovered/Resolved]
  - Accidental exposure to product by child [Recovered/Resolved]
  - Miosis [Recovered/Resolved]
  - Lethargy [Recovered/Resolved]
  - Respiratory syncytial virus infection [Recovered/Resolved]
  - Cough [Recovered/Resolved]
